FAERS Safety Report 7149476-X (Version None)
Quarter: 2010Q4

REPORT INFORMATION
  Report Type: 
  Country: None (occurrence: None)
  Receive Date: 20101209
  Receipt Date: 20101112
  Transmission Date: 20110411
  Serious: No
  Sender: FDA-Public Use
  Company Number: US-PFIZER INC-2010150989

PATIENT
  Age: 63 Year
  Sex: Female
  Weight: 58.957 kg

DRUGS (3)
  1. ADVIL [Suspect]
     Indication: BACK PAIN
     Dosage: 2, TWICE DAILY
     Route: 048
     Dates: start: 20101110, end: 20101111
  2. DEHYDROEPIANDROSTERONE [Concomitant]
  3. POTASSIUM [Concomitant]

REACTIONS (2)
  - ERYTHEMA [None]
  - JOINT SWELLING [None]
